FAERS Safety Report 21921524 (Version 1)
Quarter: 2023Q1

REPORT INFORMATION
  Report Type: Spontaneous
  Country: LU (occurrence: LU)
  Receive Date: 20230127
  Receipt Date: 20230127
  Transmission Date: 20230417
  Serious: Yes (Hospitalization)
  Sender: FDA-Public Use
  Company Number: None

PATIENT
  Age: 86 Year
  Sex: Male

DRUGS (9)
  1. PIPERACILLIN SODIUM\TAZOBACTAM SODIUM [Suspect]
     Active Substance: PIPERACILLIN SODIUM\TAZOBACTAM SODIUM
     Indication: Pneumonia
     Dosage: ROA-20045000
     Route: 042
     Dates: start: 20221229, end: 20230105
  2. ELIQUIS [Suspect]
     Active Substance: APIXABAN
     Indication: Atrial fibrillation
     Dosage: ROA-20053000
     Route: 048
     Dates: start: 20221226
  3. BISOPROLOL [Suspect]
     Active Substance: BISOPROLOL
     Indication: Atrial fibrillation
     Dosage: 2.5MG?ROA-20053000
     Route: 048
     Dates: start: 20221226
  4. ZYPREXA [Suspect]
     Active Substance: OLANZAPINE
     Indication: Behaviour disorder
     Dosage: IN THE EVENING?0.5 DF?ROA-20053000
     Route: 048
     Dates: end: 202301
  5. KEPPRA [Concomitant]
     Active Substance: LEVETIRACETAM
     Indication: Product used for unknown indication
     Dosage: 250MG?ROA-20053000
     Route: 048
  6. Exelon 9 mg [Concomitant]
     Indication: Dementia with Lewy bodies
     Dosage: ROA-20070000
     Route: 062
  7. Gutron 2,5 MG [Concomitant]
     Indication: Hypotension
     Dosage: 2.5MG?ROA-20053000
     Route: 048
  8. Prolopa HBS 100 mg/ 25 mg [Concomitant]
     Indication: Parkinson^s disease
     Dosage: ROA-20053000
     Route: 048
  9. Prolopa 125 100 MG/25 MG DISPERSIBLE TABLETS [Concomitant]
     Indication: Parkinson^s disease
     Dosage: ROA-20053000
     Route: 048

REACTIONS (1)
  - Coma [Recovered/Resolved]

NARRATIVE: CASE EVENT DATE: 20230101
